FAERS Safety Report 23074718 (Version 3)
Quarter: 2023Q4

REPORT INFORMATION
  Report Type: Report from Study
  Country: US (occurrence: US)
  Receive Date: 20231017
  Receipt Date: 20231229
  Transmission Date: 20240110
  Serious: Yes (Other)
  Sender: FDA-Public Use
  Company Number: US-UCBSA-2023033174

PATIENT
  Sex: Male

DRUGS (6)
  1. FINTEPLA [Suspect]
     Active Substance: FENFLURAMINE
     Indication: Severe myoclonic epilepsy of infancy
     Dosage: 0.5 MILLILITER, 2X/DAY (BID)
     Dates: start: 20230616
  2. FINTEPLA [Suspect]
     Active Substance: FENFLURAMINE
     Dosage: 1 MILLILITER, 2X/DAY (BID)
     Dates: start: 2023
  3. FINTEPLA [Suspect]
     Active Substance: FENFLURAMINE
     Dosage: 1.5 MILLILITER, 2X/DAY (BID)
     Dates: start: 2023
  4. FINTEPLA [Suspect]
     Active Substance: FENFLURAMINE
     Dosage: 1.5 ML IN AM AND 2 ML IN PM
     Dates: start: 2023
  5. FINTEPLA [Suspect]
     Active Substance: FENFLURAMINE
     Dosage: 1.5 ML IN THE MORNING AND 2 ML IN THE EVENING
     Dates: start: 2023
  6. FINTEPLA [Suspect]
     Active Substance: FENFLURAMINE
     Dosage: 1.5 ML QAM AND 2 ML QPM
     Dates: start: 2023

REACTIONS (8)
  - Seizure [Not Recovered/Not Resolved]
  - Increased appetite [Not Recovered/Not Resolved]
  - Somnolence [Not Recovered/Not Resolved]
  - Decreased appetite [Not Recovered/Not Resolved]
  - Weight increased [Not Recovered/Not Resolved]
  - Viral infection [Not Recovered/Not Resolved]
  - Urticaria [Not Recovered/Not Resolved]
  - Off label use [Unknown]

NARRATIVE: CASE EVENT DATE: 20230101
